FAERS Safety Report 20663844 (Version 1)
Quarter: 2022Q2

REPORT INFORMATION
  Report Type: Spontaneous
  Country: US (occurrence: None)
  Receive Date: 20220401
  Receipt Date: 20220401
  Transmission Date: 20220721
  Serious: Yes (Disabling)
  Sender: FDA-Public Use
  Company Number: None

PATIENT
  Age: 44 Year
  Sex: Female

DRUGS (10)
  1. MEDROXYPROGESTERONE ACETATE [Suspect]
     Active Substance: MEDROXYPROGESTERONE ACETATE
     Indication: Uterine haemorrhage
     Dosage: OTHER QUANTITY : 1 INJECTION(S);?OTHER FREQUENCY : EVERY 3 MONTHS;?
     Route: 030
     Dates: start: 20211216, end: 20220317
  2. Basaglar 100u 40units bid [Concomitant]
  3. Nifedipine 90mg once daily [Concomitant]
  4. Clonidine 0.3mg tid (3 times daily) [Concomitant]
  5. ) Hydrocodone/Acetaminophen 5mg/325mg 3 times daily [Concomitant]
  6. Paroxetine 10mg Daily [Concomitant]
  7. Potassium Chloride 20mg 2 times a day [Concomitant]
  8. Hydroxyzine 25mg PRN [Concomitant]
  9. MAGNESIUM [Concomitant]
     Active Substance: MAGNESIUM
  10. VITAMIN C [Concomitant]
     Active Substance: ASCORBIC ACID

REACTIONS (3)
  - Heavy menstrual bleeding [None]
  - Haemoglobin decreased [None]
  - Pelvic pain [None]

NARRATIVE: CASE EVENT DATE: 20220110
